FAERS Safety Report 8201940-8 (Version None)
Quarter: 2012Q1

REPORT INFORMATION
  Report Type: 
  Country: None (occurrence: None)
  Receive Date: 20120312
  Receipt Date: 20120308
  Transmission Date: 20120608
  Serious: Yes (Death)
  Sender: FDA-Public Use
  Company Number: AU-PFIZER INC-2012062393

PATIENT
  Age: 61 Year
  Sex: Male

DRUGS (1)
  1. ATORVASTATIN CALCIUM [Suspect]
     Dosage: 40MG, 1X/DAY

REACTIONS (2)
  - RESPIRATORY FAILURE [None]
  - RHABDOMYOLYSIS [None]
